FAERS Safety Report 5494219-9 (Version None)
Quarter: 2007Q4

REPORT INFORMATION
  Report Type: 
  Country: None (occurrence: None)
  Receive Date: 20071024
  Receipt Date: 20071019
  Transmission Date: 20080405
  Serious: Yes (Death)
  Sender: FDA-Public Use
  Company Number: PHHO2007BR17384

PATIENT
  Age: 60 Year
  Sex: Male

DRUGS (1)
  1. GALVUS MET [Suspect]

REACTIONS (1)
  - DEATH [None]
